FAERS Safety Report 4590024-6 (Version None)
Quarter: 2005Q1

REPORT INFORMATION
  Report Type: 
  Country: None (occurrence: None)
  Receive Date: 20050216
  Receipt Date: 20050131
  Transmission Date: 20050727
  Serious: Yes (Death)
  Sender: FDA-Public Use
  Company Number: B0349819A

PATIENT
  Age: 50 Year
  Sex: Female

DRUGS (5)
  1. WELLBUTRIN [Suspect]
     Dosage: ORAL
     Route: 048
  2. ALPRAZOLAM [Suspect]
     Dosage: ORAL
     Route: 048
  3. ACETAMINOPHEN [Suspect]
     Dosage: ORAL
     Route: 048
  4. PROPOXYPHENE HCL [Suspect]
     Dosage: ORAL
     Route: 048
  5. QUETIAPINE FUMARATE [Suspect]
     Dosage: ORAL
     Route: 048

REACTIONS (10)
  - BLOOD CREATINE PHOSPHOKINASE INCREASED [None]
  - BLOOD CREATININE INCREASED [None]
  - BLOOD UREA INCREASED [None]
  - COMA [None]
  - COMPLETED SUICIDE [None]
  - ELECTROCARDIOGRAM ST SEGMENT ELEVATION [None]
  - HEPATIC STEATOSIS [None]
  - MULTIPLE DRUG OVERDOSE [None]
  - PULMONARY OEDEMA [None]
  - SPLENOMEGALY [None]
